FAERS Safety Report 25994055 (Version 1)
Quarter: 2025Q4

REPORT INFORMATION
  Report Type: Other
  Country: EU (occurrence: EU)
  Receive Date: 20251104
  Receipt Date: 20251104
  Transmission Date: 20260118
  Serious: Yes (Life-Threatening)
  Sender: BIOCON
  Company Number: None

PATIENT

DRUGS (8)
  1. ADALIMUMAB [Suspect]
     Active Substance: ADALIMUMAB
     Indication: Rheumatic disorder
     Dosage: 1 DOSAGE FORM, EVERY 15 DAYS
     Route: 058
     Dates: start: 202508
  2. ADALIMUMAB [Suspect]
     Active Substance: ADALIMUMAB
  3. ADALIMUMAB [Suspect]
     Active Substance: ADALIMUMAB
  4. ADALIMUMAB [Suspect]
     Active Substance: ADALIMUMAB
  5. ADALIMUMAB [Suspect]
     Active Substance: ADALIMUMAB
  6. METHOTREXATE [Suspect]
     Active Substance: METHOTREXATE
     Indication: Rheumatic disorder
     Dosage: 1 DOSAGE FORM, QWEEK
     Route: 058
  7. PREDNISONE [Suspect]
     Active Substance: PREDNISONE
     Indication: Rheumatic disorder
     Dosage: 10 MILLIGRAM
     Route: 048
  8. KARDEGIC [Suspect]
     Active Substance: ASPIRIN DL-LYSINE
     Indication: Arterial bypass operation
     Dosage: UNK
     Route: 065

REACTIONS (4)
  - Shock haemorrhagic [Recovered/Resolved]
  - Cardiac arrest [Recovered/Resolved]
  - Post procedural infection [Recovering/Resolving]
  - Infection in an immunocompromised host [Recovering/Resolving]

NARRATIVE: CASE EVENT DATE: 20250901
